FAERS Safety Report 9416902 (Version 1)
Quarter: 2013Q3

REPORT INFORMATION
  Report Type: Spontaneous
  Country: FR (occurrence: FR)
  Receive Date: 20130724
  Receipt Date: 20130724
  Transmission Date: 20140515
  Serious: Yes (Death, Hospitalization)
  Sender: FDA-Public Use
  Company Number: FR-TEVA-420146ISR

PATIENT
  Age: 62 Year
  Sex: Male

DRUGS (1)
  1. OXALIPLATINE [Suspect]
     Indication: COLORECTAL CANCER
     Dosage: 120 MILLIGRAM DAILY; FOLFOX PROTOCOL : 5 CURES
     Route: 041
     Dates: start: 2012, end: 20120731

REACTIONS (5)
  - Death [Fatal]
  - Anaphylactic reaction [Recovered/Resolved]
  - Hypotension [Recovered/Resolved]
  - Tachycardia [Recovered/Resolved]
  - Erythema [Recovered/Resolved]
